FAERS Safety Report 6174855-7 (Version None)
Quarter: 2009Q2

REPORT INFORMATION
  Report Type: 
  Country: None (occurrence: None)
  Receive Date: 20090430
  Receipt Date: 20090206
  Transmission Date: 20091009
  Serious: No
  Sender: FDA-Public Use
  Company Number: US-ASTRAZENECA-2008UW26797

PATIENT
  Age: 22830 Day
  Sex: Female
  Weight: 81.2 kg

DRUGS (3)
  1. NEXIUM [Suspect]
     Indication: GASTROOESOPHAGEAL REFLUX DISEASE
     Dosage: 40 MG
     Route: 048
     Dates: end: 20081122
  2. ALTACE [Concomitant]
     Dosage: 10 MG
  3. LEXAPRO [Concomitant]
     Dosage: 10 MG

REACTIONS (1)
  - SENSATION OF FOREIGN BODY [None]
